FAERS Safety Report 5424100-2 (Version None)
Quarter: 2007Q3

REPORT INFORMATION
  Report Type: 
  Country: None (occurrence: None)
  Receive Date: 20070731
  Receipt Date: 20070605
  Transmission Date: 20080115
  Serious: No
  Sender: FDA-Public Use
  Company Number: US200705007456

PATIENT
  Age: 46 Year
  Sex: Female
  Weight: 88.4 kg

DRUGS (7)
  1. BYETTA [Suspect]
     Indication: TYPE 2 DIABETES MELLITUS
     Dosage: 5 UG, 2/D, SQ  10 UG, 2/D, SQ  5 UG, 2/D   10 UG, 2/D, SQ   10 UG, 2/D, SQ
     Route: 058
     Dates: start: 20070301, end: 20070301
  2. BYETTA [Suspect]
     Indication: TYPE 2 DIABETES MELLITUS
     Dosage: 5 UG, 2/D, SQ  10 UG, 2/D, SQ  5 UG, 2/D   10 UG, 2/D, SQ   10 UG, 2/D, SQ
     Route: 058
     Dates: start: 20070201, end: 20070501
  3. BYETTA [Suspect]
     Indication: TYPE 2 DIABETES MELLITUS
     Dosage: 5 UG, 2/D, SQ  10 UG, 2/D, SQ  5 UG, 2/D   10 UG, 2/D, SQ   10 UG, 2/D, SQ
     Route: 058
     Dates: start: 20070301, end: 20070501
  4. BYETTA [Suspect]
     Indication: TYPE 2 DIABETES MELLITUS
     Dosage: 5 UG, 2/D, SQ  10 UG, 2/D, SQ  5 UG, 2/D   10 UG, 2/D, SQ   10 UG, 2/D, SQ
     Route: 058
     Dates: start: 20070501
  5. BYETTA [Suspect]
     Indication: TYPE 2 DIABETES MELLITUS
     Dosage: 5 UG, 2/D, SQ  10 UG, 2/D, SQ  5 UG, 2/D   10 UG, 2/D, SQ   10 UG, 2/D, SQ
     Route: 058
     Dates: start: 20070501
  6. GLYBURIDE [Concomitant]
  7. ACTOS [Concomitant]

REACTIONS (12)
  - BLOOD GLUCOSE INCREASED [None]
  - DECREASED APPETITE [None]
  - DRUG EFFECT DECREASED [None]
  - DYSPEPSIA [None]
  - ERUCTATION [None]
  - HEADACHE [None]
  - HYPERKERATOSIS [None]
  - INJECTION SITE IRRITATION [None]
  - INJECTION SITE PAIN [None]
  - NAUSEA [None]
  - PAIN IN EXTREMITY [None]
  - WEIGHT DECREASED [None]
